FAERS Safety Report 4359286-4 (Version None)
Quarter: 2004Q2

REPORT INFORMATION
  Report Type: 
  Country: None (occurrence: None)
  Receive Date: 20040512
  Receipt Date: 20040503
  Transmission Date: 20050107
  Serious: Yes (Hospitalization)
  Sender: FDA-Public Use
  Company Number: 2004029541

PATIENT
  Age: 19 Year
  Sex: Female
  Weight: 54.4316 kg

DRUGS (1)
  1. BENADRYL [Suspect]
     Indication: DEPRESSED MOOD
     Dosage: 8 TABS ONCE, ORAL
     Route: 048
     Dates: start: 20040503, end: 20040503

REACTIONS (4)
  - CRYING [None]
  - LOSS OF CONSCIOUSNESS [None]
  - OVERDOSE [None]
  - TREMOR [None]
